FAERS Safety Report 7326103-X (Version None)
Quarter: 2011Q1

REPORT INFORMATION
  Report Type: 
  Country: None (occurrence: None)
  Receive Date: 20110302
  Receipt Date: 20110225
  Transmission Date: 20110831
  Serious: Yes (Hospitalization)
  Sender: FDA-Public Use
  Company Number: GB-ROCHE-759244

PATIENT
  Age: 85 Year
  Sex: Female

DRUGS (9)
  1. FUROSEMIDE [Concomitant]
  2. RANITIDINE [Concomitant]
  3. SIMVASTATIN [Concomitant]
  4. DIGOXIN [Concomitant]
  5. WARFARIN [Concomitant]
  6. IBANDRONIC ACID [Suspect]
     Dosage: DRUG WITHDRAWN
     Route: 065
  7. LOSARTAN POTASSIUM [Concomitant]
  8. SOTALOL HYDROCHLORIDE [Concomitant]
  9. IBANDRONIC ACID [Suspect]
     Indication: OSTEOPOROSIS
     Dosage: DRUG REPORTED:IBANDRONATE SODIUM, DURATION :5 YEARS ACTION;WITHDRAWN.
     Route: 065

REACTIONS (2)
  - FEMUR FRACTURE [None]
  - BONE METABOLISM DISORDER [None]
